FAERS Safety Report 18940144 (Version 1)
Quarter: 2021Q1

REPORT INFORMATION
  Report Type: Spontaneous
  Country: US (occurrence: US)
  Receive Date: 20210225
  Receipt Date: 20210225
  Transmission Date: 20210420
  Serious: No
  Sender: FDA-Public Use
  Company Number: None

PATIENT
  Age: 86 Year
  Sex: Female
  Weight: 76.05 kg

DRUGS (9)
  1. ATENOLOL 25MG [Concomitant]
     Active Substance: ATENOLOL
  2. ATORVASTATIN 20MG [Concomitant]
     Active Substance: ATORVASTATIN
  3. VITAMIN D 1000U [Concomitant]
  4. LETROZOLE 2.5MG [Concomitant]
     Active Substance: LETROZOLE
  5. LOSARTAN 50MG [Concomitant]
     Active Substance: LOSARTAN
  6. FUROSEMIDE 20MG [Concomitant]
     Active Substance: FUROSEMIDE
  7. XARELTO [Concomitant]
     Active Substance: RIVAROXABAN
  8. IBRANCE [Suspect]
     Active Substance: PALBOCICLIB
     Indication: BREAST CANCER
     Route: 048
     Dates: start: 20210112
  9. AMLODIPINE [Concomitant]
     Active Substance: AMLODIPINE BESYLATE

REACTIONS (1)
  - Pruritus [None]

NARRATIVE: CASE EVENT DATE: 20210225
